FAERS Safety Report 16728873 (Version 1)
Quarter: 2019Q3

REPORT INFORMATION
  Report Type: Spontaneous
  Country: FR (occurrence: FR)
  Receive Date: 20190822
  Receipt Date: 20190822
  Transmission Date: 20191005
  Serious: Yes (Other)
  Sender: FDA-Public Use
  Company Number: FR-PFIZER INC-2019353625

PATIENT
  Age: 75 Year
  Sex: Female

DRUGS (12)
  1. METHOTREXATE SODIUM. [Suspect]
     Active Substance: METHOTREXATE SODIUM
     Indication: RHEUMATOID ARTHRITIS
     Dosage: UNKNOWN
     Route: 065
     Dates: start: 1999, end: 2006
  2. METFORMINE [METFORMIN] [Concomitant]
     Active Substance: METFORMIN HYDROCHLORIDE
  3. HUMIRA [Suspect]
     Active Substance: ADALIMUMAB
     Indication: RHEUMATOID ARTHRITIS
     Dosage: UNKNOWN
     Route: 065
     Dates: start: 2010, end: 2011
  4. CALCIFEDIOL [Concomitant]
     Active Substance: CALCIFEDIOL
  5. JANUVIA [Concomitant]
     Active Substance: SITAGLIPTIN PHOSPHATE
  6. KARDEGIC [Concomitant]
     Active Substance: ASPIRIN DL-LYSINE
  7. OROCAL [CALCIUM CARBONATE;COLECALCIFEROL] [Concomitant]
  8. SITAGLIPTIN [Concomitant]
     Active Substance: SITAGLIPTIN
     Dosage: UNK
  9. SPECIAFOLDINE [Concomitant]
     Active Substance: FOLIC ACID
  10. METHOTREXATE SODIUM. [Suspect]
     Active Substance: METHOTREXATE SODIUM
     Dosage: UNKNOWN
     Route: 065
     Dates: start: 2011, end: 20181118
  11. ROACTEMRA [Suspect]
     Active Substance: TOCILIZUMAB
     Indication: RHEUMATOID ARTHRITIS
     Dosage: 8 MG/KG, EVERY 4 WEEKS
     Route: 042
     Dates: start: 2011, end: 20190620
  12. ENBREL [Suspect]
     Active Substance: ETANERCEPT
     Indication: RHEUMATOID ARTHRITIS
     Dosage: UNKNOWN
     Route: 065
     Dates: start: 2006, end: 2010

REACTIONS (1)
  - Acute myeloid leukaemia [Not Recovered/Not Resolved]

NARRATIVE: CASE EVENT DATE: 20190613
